FAERS Safety Report 21313649 (Version 1)
Quarter: 2022Q3

REPORT INFORMATION
  Report Type: Report from Study
  Country: JP (occurrence: JP)
  Receive Date: 20220909
  Receipt Date: 20220909
  Transmission Date: 20221027
  Serious: Yes (Other)
  Sender: FDA-Public Use
  Company Number: JP-GSKPMS-217893-0017-005

PATIENT

DRUGS (18)
  1. SOTROVIMAB [Suspect]
     Active Substance: SOTROVIMAB
     Indication: COVID-19
     Dosage: 500 MG, 100 ML/H (50ML/30MIN)
     Route: 041
     Dates: start: 20220322
  2. FLUTICASONE FUROATE\VILANTEROL TRIFENATATE [Concomitant]
     Active Substance: FLUTICASONE FUROATE\VILANTEROL TRIFENATATE
     Dosage: 200 UG
     Route: 055
  3. JANUVIA TABLET (SITAGLIPTIN PHOSPHATE HYDRATE) [Concomitant]
     Dosage: UNK
  4. TELMISARTAN [Concomitant]
     Active Substance: TELMISARTAN
     Dosage: UNK
  5. BISOPROLOL FUMARATE TABLET [Concomitant]
     Dosage: UNK
  6. AZELNIDIPINE TABLETS [Concomitant]
     Dosage: UNK
  7. ROSUVASTATIN CALCIUM [Concomitant]
     Active Substance: ROSUVASTATIN CALCIUM
     Dosage: UNK
  8. RABEPRAZOLE SODIUM TABLET [Concomitant]
     Dosage: UNK
  9. MIYA-BM [Concomitant]
     Active Substance: CLOSTRIDIUM BUTYRICUM SPORES STRAIN M-55
     Dosage: UNK
  10. INSULIN GLARGINE BS INJECTION [Concomitant]
     Dosage: UNK
  11. INSULIN LISPRO [Concomitant]
     Active Substance: INSULIN LISPRO
     Indication: Diabetes mellitus inadequate control
     Dosage: UNK
  12. MONTELUKAST SODIUM [Concomitant]
     Active Substance: MONTELUKAST SODIUM
     Dosage: UNK
  13. METGLUCO TABLETS [Concomitant]
     Dosage: UNK
  14. CLENAFIN NAIL SOLUTION FOR EXTERNAL USE 10% [Concomitant]
     Dosage: UNK
  15. TIMOLOL MALEATE\TRAVOPROST [Concomitant]
     Active Substance: TIMOLOL MALEATE\TRAVOPROST
     Dosage: UNK
  16. AIPHAGAN OPHTHALMIC SOLUTION [Concomitant]
     Dosage: UNK
  17. HYALURONATE NA OPHTHALMIC SOLUTION 0.1% [Concomitant]
     Dosage: UNK
  18. LEVOCABASTINE HYDROCHLORIDE [Concomitant]
     Active Substance: LEVOCABASTINE HYDROCHLORIDE
     Dosage: UNK

REACTIONS (1)
  - Diabetes mellitus inadequate control [Recovered/Resolved]

NARRATIVE: CASE EVENT DATE: 20220323
